FAERS Safety Report 23769620 (Version 3)
Quarter: 2024Q2

REPORT INFORMATION
  Report Type: Report from Study
  Country: TH (occurrence: TH)
  Receive Date: 20240422
  Receipt Date: 20240604
  Transmission Date: 20240716
  Serious: Yes (Hospitalization, Other)
  Sender: FDA-Public Use
  Company Number: TH-BAYER-2024A058199

PATIENT
  Age: 73 Year
  Sex: Female

DRUGS (1)
  1. STIVARGA [Suspect]
     Active Substance: REGORAFENIB\REGORAFENIB MONOHYDRATE
     Indication: Colorectal cancer
     Dosage: 80 MG, QD
     Dates: start: 20231220, end: 20240402

REACTIONS (9)
  - Fatigue [Not Recovered/Not Resolved]
  - Asthenia [Unknown]
  - Throat tightness [Not Recovered/Not Resolved]
  - Abdominal tenderness [Not Recovered/Not Resolved]
  - Oropharyngeal discomfort [Not Recovered/Not Resolved]
  - Oropharyngeal pain [Not Recovered/Not Resolved]
  - Decreased appetite [Not Recovered/Not Resolved]
  - Weight decreased [Not Recovered/Not Resolved]
  - Hypophagia [None]

NARRATIVE: CASE EVENT DATE: 20240403
